FAERS Safety Report 15087955 (Version 1)
Quarter: 2018Q2

REPORT INFORMATION
  Report Type: Spontaneous
  Country: JP (occurrence: JP)
  Receive Date: 20180629
  Receipt Date: 20180629
  Transmission Date: 20180711
  Serious: Yes (Other)
  Sender: FDA-Public Use
  Company Number: JP-TEVA-2012-002791

PATIENT
  Age: 79 Year
  Sex: Female
  Weight: 32 kg

DRUGS (2)
  1. BENET [Suspect]
     Active Substance: RISEDRONATE SODIUM
     Indication: OSTEOPOROSIS
     Route: 048
  2. BENET [Suspect]
     Active Substance: RISEDRONATE SODIUM
     Indication: OSTEOPOROSIS
     Dosage: 2.5 MILLIGRAM DAILY;
     Route: 048

REACTIONS (13)
  - Impaired healing [Unknown]
  - Spinal deformity [Unknown]
  - Osteonecrosis of jaw [Recovering/Resolving]
  - Purulent discharge [Recovered/Resolved]
  - Exposed bone in jaw [Unknown]
  - Spinal fracture [Unknown]
  - Bone swelling [Recovered/Resolved]
  - Granuloma [Unknown]
  - Dental fistula [Recovered/Resolved]
  - Bacterial infection [Unknown]
  - Pain in jaw [Recovered/Resolved]
  - Body height decreased [Unknown]
  - Tooth extraction [Unknown]
